FAERS Safety Report 8433417-9 (Version None)
Quarter: 2012Q2

REPORT INFORMATION
  Report Type: 
  Country: None (occurrence: None)
  Receive Date: 20120613
  Receipt Date: 20120606
  Transmission Date: 20120825
  Serious: Yes (Death, Hospitalization)
  Sender: FDA-Public Use
  Company Number: DE-JNJFOC-20120210600

PATIENT
  Age: 42 Year
  Sex: Male

DRUGS (10)
  1. GLIANIMON [Suspect]
     Route: 048
     Dates: start: 20111019, end: 20111019
  2. GLIANIMON [Suspect]
     Dosage: 0 TO 4 MG
     Route: 048
     Dates: start: 20111006, end: 20111018
  3. GLIANIMON [Suspect]
     Route: 048
     Dates: start: 20111021
  4. RISPERDAL CONSTA [Suspect]
     Route: 030
     Dates: end: 20111021
  5. GLIANIMON [Suspect]
     Indication: PSYCHOTIC DISORDER
     Route: 048
     Dates: start: 20111020, end: 20111020
  6. RISPERDAL [Suspect]
     Route: 048
     Dates: start: 20111019, end: 20111019
  7. RISPERDAL [Suspect]
     Indication: PRODUCT USED FOR UNKNOWN INDICATION
     Route: 048
     Dates: start: 20111006, end: 20111018
  8. ZOPICLON [Concomitant]
     Route: 048
     Dates: start: 20111006, end: 20111021
  9. RISPERDAL CONSTA [Suspect]
     Indication: PRODUCT USED FOR UNKNOWN INDICATION
     Route: 030
  10. RISPERDAL [Suspect]
     Route: 048
     Dates: start: 20111020, end: 20111020

REACTIONS (2)
  - PSYCHOTIC DISORDER [None]
  - DEATH [None]
